FAERS Safety Report 4323836-4 (Version None)
Quarter: 2004Q1

REPORT INFORMATION
  Report Type: 
  Country: None (occurrence: None)
  Receive Date: 20040323
  Receipt Date: 20040309
  Transmission Date: 20041129
  Serious: Yes (Hospitalization)
  Sender: FDA-Public Use
  Company Number: AU-JNJFOC-20040302586

PATIENT
  Sex: Female

DRUGS (7)
  1. TRAMAL (TRAMADOL HYDROCHLORIDE) UNSPECIFIED [Suspect]
     Indication: GENERAL SYMPTOM
     Dosage: 200 MG
  2. TEGRETOL [Concomitant]
  3. TICLID [Concomitant]
  4. ZANTAC [Concomitant]
  5. VITAMINS (VITAMINS) [Concomitant]
  6. PANAMAX (PARACETAMOL) [Concomitant]
  7. NITRAZEPAM [Concomitant]

REACTIONS (2)
  - CONVULSION [None]
  - LOSS OF CONSCIOUSNESS [None]
